FAERS Safety Report 10209464 (Version 2)
Quarter: 2015Q1

REPORT INFORMATION
  Report Type: Spontaneous
  Country: JP (occurrence: JP)
  Receive Date: 20140601
  Receipt Date: 20150224
  Transmission Date: 20150720
  Serious: Yes (Hospitalization)
  Sender: FDA-Public Use
  Company Number: JP-MERCK-1405JPN013901

PATIENT
  Age: 59 Year
  Sex: Male

DRUGS (2)
  1. IMIPENEM AND CILASTATIN [Suspect]
     Active Substance: CILASTATIN SODIUM\IMIPENEM
     Indication: OTITIS EXTERNA
     Dosage: 1G/DAY, 1H INFUSION OF 0.5 G EVERY 12 H
     Route: 042
  2. PIPERACILLIN [Suspect]
     Active Substance: PIPERACILLIN
     Indication: OTITIS EXTERNA
     Dosage: 1 H INFUSION OF 1 G, Q6H,
     Route: 042

REACTIONS (3)
  - Drug ineffective [Unknown]
  - Otitis externa [Recovering/Resolving]
  - Osteomyelitis [Recovering/Resolving]
